FAERS Safety Report 7565284-X (Version None)
Quarter: 2011Q2

REPORT INFORMATION
  Report Type: 
  Country: None (occurrence: None)
  Receive Date: 20110623
  Receipt Date: 20110617
  Transmission Date: 20111010
  Serious: Yes (Hospitalization)
  Sender: FDA-Public Use
  Company Number: US-BRISTOL-MYERS SQUIBB COMPANY-15841281

PATIENT
  Age: 56 Year
  Sex: Male

DRUGS (3)
  1. REYATAZ [Suspect]
     Dates: start: 20090101
  2. ZIDOVUDINE [Suspect]
  3. EPIVIR [Suspect]

REACTIONS (2)
  - THROAT CANCER [None]
  - FEBRILE NEUTROPENIA [None]
